FAERS Safety Report 10529951 (Version 2)
Quarter: 2014Q4

REPORT INFORMATION
  Report Type: Report from Study
  Country: CA (occurrence: CA)
  Receive Date: 20141021
  Receipt Date: 20141120
  Transmission Date: 20150528
  Serious: Yes (Death, Hospitalization, Other)
  Sender: FDA-Public Use
  Company Number: CA-AMGEN-CANSL2014079938

PATIENT
  Age: 94 Year
  Sex: Female

DRUGS (1)
  1. PROLIA [Suspect]
     Active Substance: DENOSUMAB
     Indication: OSTEOPOROSIS POSTMENOPAUSAL
     Dosage: 60 MG, Q6MO
     Route: 058
     Dates: start: 20111128, end: 201403

REACTIONS (7)
  - Urinary tract infection [Not Recovered/Not Resolved]
  - Sepsis [Unknown]
  - Cardiac failure [Unknown]
  - Memory impairment [Unknown]
  - Hypertension [Unknown]
  - Cardiovascular disorder [Fatal]
  - Ill-defined disorder [Unknown]
